FAERS Safety Report 14612868 (Version 1)
Quarter: 2018Q1

REPORT INFORMATION
  Report Type: Spontaneous
  Country: US (occurrence: US)
  Receive Date: 20180308
  Receipt Date: 20180308
  Transmission Date: 20180509
  Serious: Yes (Death, Other)
  Sender: FDA-Public Use
  Company Number: US-SA-2018SA060802

PATIENT
  Age: 87 Year
  Sex: Male

DRUGS (1)
  1. LOVENOX [Suspect]
     Active Substance: ENOXAPARIN SODIUM
     Indication: CEREBROVASCULAR ACCIDENT
     Route: 065

REACTIONS (6)
  - Death [Fatal]
  - Liver disorder [Unknown]
  - Chronic kidney disease [Unknown]
  - Fall [Unknown]
  - Dehydration [Unknown]
  - Tremor [Unknown]
